FAERS Safety Report 6490467-X (Version None)
Quarter: 2009Q4

REPORT INFORMATION
  Report Type: 
  Country: None (occurrence: None)
  Receive Date: 20091210
  Receipt Date: 20091210
  Transmission Date: 20100525
  Serious: Yes (Hospitalization)
  Sender: FDA-Public Use
  Company Number: None

PATIENT
  Sex: Female
  Weight: 3.4 kg

DRUGS (3)
  1. CARBOPLATIN [Suspect]
     Dosage: 58 MG
  2. ETOPOSIDE [Suspect]
     Dosage: 36 MG
  3. G-CSF (FILGRASTIM, AMGEN) 105 MCG [Suspect]
     Dosage: 105 MCG

REACTIONS (6)
  - ASCITES [None]
  - HYPOVENTILATION [None]
  - METABOLIC ACIDOSIS [None]
  - NEONATAL DISORDER [None]
  - NEONATAL HYPOTENSION [None]
  - NO THERAPEUTIC RESPONSE [None]
